FAERS Safety Report 8920433 (Version 2)
Quarter: 2012Q4

REPORT INFORMATION
  Report Type: 
  Country: JP (occurrence: JP)
  Receive Date: 20121122
  Receipt Date: 20121124
  Transmission Date: 20130627
  Serious: Yes (Hospitalization)
  Sender: FDA-Public Use
  Company Number: PHHY2012JP105794

PATIENT
  Sex: Female

DRUGS (1)
  1. BROMOCRIPTINE [Suspect]
     Indication: SUPPRESSED LACTATION
     Route: 048

REACTIONS (4)
  - Electrocardiogram QT prolonged [Not Recovered/Not Resolved]
  - Genetic polymorphism [Unknown]
  - Torsade de pointes [Unknown]
  - Syncope [Unknown]
